FAERS Safety Report 5742473-8 (Version None)
Quarter: 2008Q2

REPORT INFORMATION
  Report Type: 
  Country: None (occurrence: None)
  Receive Date: 20080519
  Receipt Date: 20080508
  Transmission Date: 20081010
  Serious: Yes (Hospitalization)
  Sender: FDA-Public Use
  Company Number: JP-NOVOPROD-274563

PATIENT
  Sex: Female
  Weight: 39 kg

DRUGS (7)
  1. NOVORAPID CHU FLEXPEN [Suspect]
     Indication: TYPE 2 DIABETES MELLITUS
     Dosage: 16-24 IU, QD
     Route: 058
     Dates: start: 20071025
  2. LANTUS [Concomitant]
     Dosage: 4-8 IU, QD
     Route: 058
     Dates: start: 20071025, end: 20080416
  3. BASEN [Concomitant]
     Indication: TYPE 2 DIABETES MELLITUS
     Dosage: .9 MG, QD
     Route: 048
     Dates: start: 20071128, end: 20080408
  4. MEVALOTIN [Concomitant]
     Indication: HYPERLIPIDAEMIA
     Dosage: 1 TAB, QD
     Route: 048
     Dates: start: 20080117, end: 20080408
  5. BLADDERON [Concomitant]
     Indication: POLLAKIURIA
     Dosage: 3 TAB, QD
     Route: 048
     Dates: start: 20080206, end: 20080331
  6. BUP-4 [Concomitant]
     Indication: NEUROGENIC BLADDER
     Dosage: 20 MG, QD
     Route: 048
     Dates: start: 20080206, end: 20080331
  7. AMARYL [Concomitant]
     Dosage: 1 MG, UNK
     Dates: start: 20071017

REACTIONS (1)
  - HEPATIC FUNCTION ABNORMAL [None]
